FAERS Safety Report 8295044-6 (Version None)
Quarter: 2012Q2

REPORT INFORMATION
  Report Type: 
  Country: None (occurrence: None)
  Receive Date: 20120411
  Receipt Date: 20120314
  Transmission Date: 20120825
  Serious: Yes (Other)
  Sender: FDA-Public Use
  Company Number: GGEL20120300334

PATIENT
  Age: 17 Year
  Sex: Female

DRUGS (2)
  1. NORGESTIMATE AND ETHINYL ESTRADIOL [Suspect]
     Indication: ORAL CONTRACEPTION
     Dosage: 1 IN 1 D, ORAL
     Route: 048
     Dates: start: 20120226
  2. ZOLOFT (SERTRALINE HYDROCHLORIDE) (TABLETS) (SERTRALINE HYDROCHLORIDE) [Concomitant]

REACTIONS (3)
  - THROMBOSIS [None]
  - HAEMATOCHEZIA [None]
  - MENSTRUAL DISORDER [None]
